FAERS Safety Report 5124401-1 (Version None)
Quarter: 2006Q4

REPORT INFORMATION
  Report Type: 
  Country: None (occurrence: None)
  Receive Date: 20061010
  Receipt Date: 20061005
  Transmission Date: 20070319
  Serious: Yes (Hospitalization)
  Sender: FDA-Public Use
  Company Number: FR-MERCK-0610FRA00014

PATIENT
  Age: 9 Year
  Sex: Male

DRUGS (3)
  1. COZAAR [Suspect]
     Indication: RENAL FAILURE CHRONIC
     Route: 048
     Dates: start: 19980101
  2. SODIUM BICARBONATE [Suspect]
     Indication: RENAL FAILURE CHRONIC
     Route: 048
     Dates: start: 19980101
  3. CALCIFEDIOL [Suspect]
     Indication: RENAL FAILURE CHRONIC
     Route: 048
     Dates: start: 19980101

REACTIONS (1)
  - INTRACRANIAL PRESSURE INCREASED [None]
